FAERS Safety Report 6488234-6 (Version None)
Quarter: 2009Q4

REPORT INFORMATION
  Report Type: 
  Country: None (occurrence: None)
  Receive Date: 20091210
  Receipt Date: 20091130
  Transmission Date: 20100525
  Serious: Yes (Other)
  Sender: FDA-Public Use
  Company Number: B0613538A

PATIENT
  Sex: Male

DRUGS (3)
  1. CLENIL [Suspect]
     Indication: DRUG USE FOR UNKNOWN INDICATION
     Route: 055
  2. BECLOMETASONE DIPROPIONATE [Concomitant]
  3. QVAR 40 [Concomitant]

REACTIONS (2)
  - DYSPNOEA [None]
  - THROAT IRRITATION [None]
